FAERS Safety Report 11174111 (Version 1)
Quarter: 2015Q2

REPORT INFORMATION
  Report Type: Spontaneous
  Country: US (occurrence: None)
  Receive Date: 20150608
  Receipt Date: 20150608
  Transmission Date: 20150821
  Serious: Yes (Hospitalization)
  Sender: FDA-Public Use
  Company Number: None

PATIENT
  Age: 60 Year
  Sex: Male
  Weight: 118.4 kg

DRUGS (1)
  1. HARVONI [Suspect]
     Active Substance: LEDIPASVIR\SOFOSBUVIR
     Indication: CHRONIC HEPATITIS C
     Route: 048
     Dates: start: 20141105, end: 20150121

REACTIONS (9)
  - Diastolic dysfunction [None]
  - Metabolic acidosis [None]
  - N-terminal prohormone brain natriuretic peptide increased [None]
  - Oedema peripheral [None]
  - Dyspnoea [None]
  - Dilatation atrial [None]
  - Renal impairment [None]
  - Hepatic function abnormal [None]
  - Hypoglycaemia [None]

NARRATIVE: CASE EVENT DATE: 20150121
